FAERS Safety Report 19460139 (Version 2)
Quarter: 2023Q1

REPORT INFORMATION
  Report Type: Report from Study
  Country: US (occurrence: US)
  Receive Date: 20210625
  Receipt Date: 20230209
  Transmission Date: 20230418
  Serious: Yes (Death, Other)
  Sender: FDA-Public Use
  Company Number: US-ACADIA PHARMACEUTICALS INC.-ACA-2021-PIM-002051

PATIENT
  Age: 69 Year
  Sex: Male

DRUGS (13)
  1. NUPLAZID [Suspect]
     Active Substance: PIMAVANSERIN TARTRATE
     Indication: Parkinson^s disease
     Dosage: 34 MILLIGRAM, QD
     Route: 048
     Dates: start: 20191204, end: 202301
  2. AMANTADINE [Concomitant]
     Active Substance: AMANTADINE
  3. CLONAZEPAM [Concomitant]
     Active Substance: CLONAZEPAM
  4. ESCITALOPRAM [Concomitant]
     Active Substance: ESCITALOPRAM OXALATE
  5. FLUDROCORTISONE [Concomitant]
     Active Substance: FLUDROCORTISONE
  6. MERCAPTOPURINE [Concomitant]
     Active Substance: MERCAPTOPURINE
  7. MYRBETRIQ [Concomitant]
     Active Substance: MIRABEGRON
  8. NAMZARIC [Concomitant]
     Active Substance: DONEPEZIL HYDROCHLORIDE\MEMANTINE HYDROCHLORIDE
  9. RASAGILINE [Concomitant]
     Active Substance: RASAGILINE
  10. RYTARY [Concomitant]
     Active Substance: CARBIDOPA\LEVODOPA
  11. SYNTHROID [Concomitant]
     Active Substance: LEVOTHYROXINE SODIUM
  12. DROXIDOPA [Concomitant]
     Active Substance: DROXIDOPA
     Dosage: 100 MILLIGRAM
  13. TOPIRAMATE [Concomitant]
     Active Substance: TOPIRAMATE
     Dosage: 50 MILLIGRAM

REACTIONS (2)
  - Death [Fatal]
  - Hallucination [Not Recovered/Not Resolved]

NARRATIVE: CASE EVENT DATE: 20230123
